FAERS Safety Report 4824533-9 (Version None)
Quarter: 2005Q4

REPORT INFORMATION
  Report Type: 
  Country: None (occurrence: None)
  Receive Date: 20051108
  Receipt Date: 20051028
  Transmission Date: 20060501
  Serious: Yes (Other)
  Sender: FDA-Public Use
  Company Number: DE_051017222

PATIENT
  Age: 77 Year
  Sex: Female

DRUGS (9)
  1. FORTEO [Suspect]
     Indication: OSTEOPOROTIC FRACTURE
     Dates: start: 20040101, end: 20050101
  2. FORTEO [Suspect]
     Indication: SPINAL FRACTURE
     Dates: start: 20040101, end: 20050101
  3. THYRONAJOD [Concomitant]
  4. ACIMETHIN (METHIONINE) [Concomitant]
  5. CALCIUM GLUCONATE [Concomitant]
  6. VITAMIN D [Concomitant]
  7. ISOPTIN MITE (VERAPAMIL HYDROCHLORIDE) [Concomitant]
  8. FUROSEMIDE [Concomitant]
  9. ADALAT [Concomitant]

REACTIONS (4)
  - BONE PAIN [None]
  - GENERALISED OEDEMA [None]
  - HYPERTENSIVE CRISIS [None]
  - NAUSEA [None]
